FAERS Safety Report 5723619-4 (Version None)
Quarter: 2008Q2

REPORT INFORMATION
  Report Type: 
  Country: None (occurrence: None)
  Receive Date: 20080430
  Receipt Date: 20080416
  Transmission Date: 20081010
  Serious: Yes (Hospitalization)
  Sender: FDA-Public Use
  Company Number: IN-PURDUE-MAG_2008_0000671

PATIENT
  Age: 65 Year
  Sex: Male

DRUGS (5)
  1. THEOPHYLLINE [Suspect]
     Indication: ASTHMA
     Dosage: 400 MG, DAILY
     Route: 048
  2. NEBIVOLOL HCL [Suspect]
     Indication: DRUG USE FOR UNKNOWN INDICATION
     Dosage: 2.5 MG, DAILY
     Route: 048
  3. TIOTROPIUM [Suspect]
     Indication: DRUG USE FOR UNKNOWN INDICATION
     Route: 055
  4. FORMOTEROL FUMARATE [Suspect]
     Indication: DRUG USE FOR UNKNOWN INDICATION
     Dosage: UNK, BID
     Route: 055
  5. RAMIPRIL WITH HYDROCHLORTHIAZIDE [Suspect]
     Indication: HYPERTENSION
     Dosage: 2.5/12.5 MG
     Route: 048

REACTIONS (5)
  - ELECTROCARDIOGRAM T WAVE AMPLITUDE DECREASED [None]
  - HEART RATE INCREASED [None]
  - HEART RATE IRREGULAR [None]
  - HYPERTENSION [None]
  - WHEEZING [None]
